FAERS Safety Report 9034851 (Version 2)
Quarter: 2013Q2

REPORT INFORMATION
  Report Type: Spontaneous
  Country: BE (occurrence: BE)
  Receive Date: 20130128
  Receipt Date: 20130506
  Transmission Date: 20140414
  Serious: Yes (Death, Hospitalization, Other)
  Sender: FDA-Public Use
  Company Number: BE-ASTRAZENECA-2013SE04791

PATIENT
  Sex: Female
  Weight: 80 kg

DRUGS (1)
  1. BRILIQUE [Suspect]
     Indication: ACUTE CORONARY SYNDROME
     Route: 048
     Dates: start: 20121223

REACTIONS (6)
  - Haemorrhage [Fatal]
  - Pneumonia [Fatal]
  - Haemodynamic instability [Fatal]
  - Sepsis [Fatal]
  - Aortic dissection [Fatal]
  - Acute respiratory distress syndrome [Fatal]
